FAERS Safety Report 18147635 (Version 1)
Quarter: 2020Q3

REPORT INFORMATION
  Report Type: Spontaneous
  Country: DE (occurrence: DE)
  Receive Date: 20200813
  Receipt Date: 20200813
  Transmission Date: 20201103
  Serious: Yes (Hospitalization)
  Sender: FDA-Public Use
  Company Number: DE-PFIZER INC-2020310712

PATIENT
  Age: 83 Year
  Sex: Male
  Weight: 72 kg

DRUGS (13)
  1. SIROLIMUS. [Suspect]
     Active Substance: SIROLIMUS
     Dosage: 0.5 MG, 1X/DAY (1?0?0?0)
     Route: 048
  2. FERINJECT [Concomitant]
     Active Substance: FERRIC CARBOXYMALTOSE
     Dosage: 50 MG EVERY 2 WEEKS (1?0?0?0)
     Route: 058
  3. COLECALCIFEROL [Concomitant]
     Active Substance: CHOLECALCIFEROL
     Dosage: 20000 IU, MONTHLY
     Route: 048
  4. CLOPIDOGREL [Concomitant]
     Active Substance: CLOPIDOGREL BISULFATE
     Dosage: 75 MG, 1X/DAY (1?0?0?0)
     Route: 048
  5. SIROLIMUS. [Suspect]
     Active Substance: SIROLIMUS
     Dosage: 1 MG, (0?2?0?0)
     Route: 048
  6. SERTRALIN [Concomitant]
     Active Substance: SERTRALINE HYDROCHLORIDE
     Dosage: 100 MG (0.5?0?0?0)
     Route: 048
  7. NALOXONE HYDROCHLORIDE/OXYCODONE HYDROCHLORIDE [Concomitant]
     Active Substance: NALOXONE HYDROCHLORIDE\OXYCODONE HYDROCHLORIDE
     Dosage: 5 MG;10 MG, (2?0?2?0)
     Route: 048
  8. METAMIZOL [Concomitant]
     Active Substance: METAMIZOLE SODIUM
     Dosage: 500 MG, 3X/DAY ( 1?1?1?0)
     Route: 048
  9. METOPROLOL. [Concomitant]
     Active Substance: METOPROLOL
     Dosage: 95 MG (0?0.5?0?0)
     Route: 048
  10. SIMVASTATIN. [Concomitant]
     Active Substance: SIMVASTATIN
     Dosage: 30 MG, 1X/DAY ( 0?0?1?0)
     Route: 048
  11. AMLODIPIN [Concomitant]
     Active Substance: AMLODIPINE BESYLATE
     Dosage: 50 MG, 1X/DAY (0?0?1?0)
     Route: 048
  12. CYANOCOBALAMIN. [Concomitant]
     Active Substance: CYANOCOBALAMIN
     Dosage: 3 MG, MONTHLY
     Route: 030
  13. FUROSEMID [Concomitant]
     Active Substance: FUROSEMIDE
     Dosage: 75 MG, 2X/DAY (1?1?0?0)
     Route: 048

REACTIONS (7)
  - Dyspnoea [Unknown]
  - Influenza [Unknown]
  - Pneumonia [Unknown]
  - Cough [Unknown]
  - Musculoskeletal pain [Unknown]
  - Pain [Unknown]
  - Back pain [Unknown]
